FAERS Safety Report 10045910 (Version 1)
Quarter: 2014Q1

REPORT INFORMATION
  Report Type: Spontaneous
  Country: US (occurrence: US)
  Receive Date: 20140329
  Receipt Date: 20140329
  Transmission Date: 20141002
  Serious: No
  Sender: FDA-Public Use
  Company Number: US-B.I. PHARMACEUTICALS,INC./RIDGEFIELD-2014-BI-11996BP

PATIENT
  Sex: Female
  Weight: 64 kg

DRUGS (27)
  1. SPIRIVA [Suspect]
     Indication: CHRONIC OBSTRUCTIVE PULMONARY DISEASE
     Dosage: 18 MCG
     Route: 055
     Dates: start: 2008, end: 2010
  2. SPIRIVA [Suspect]
     Dosage: 18 MCG
     Route: 055
     Dates: start: 2011
  3. LYRICA [Concomitant]
     Indication: SCIATICA
     Dosage: 150 MG
     Route: 048
  4. LYRICA [Concomitant]
     Indication: FIBROMYALGIA
  5. CYMBALTA [Concomitant]
     Indication: SCIATICA
     Dosage: 60 MG
     Route: 048
  6. CYMBALTA [Concomitant]
     Indication: FIBROMYALGIA
  7. ALPRAZOLAM [Concomitant]
     Indication: ANXIETY
     Dosage: 2 MG
     Route: 048
  8. ALPRAZOLAM [Concomitant]
     Indication: INSOMNIA
  9. AMLODIPINE [Concomitant]
     Indication: HYPERTENSION
     Dosage: 5 MG
     Route: 048
  10. BUDESONIDE [Concomitant]
     Indication: DYSPNOEA
     Dosage: FORMULATION: INHALATION AEROSOL, STRENGTH: 1 TUBES; DAILY DOSE: 2 TUBES
     Route: 055
  11. CALCIUM [Concomitant]
     Indication: OSTEOPENIA
     Dosage: 2000 MG
     Route: 048
  12. DUONEB [Concomitant]
     Indication: INHALATION THERAPY
     Dosage: FORMULATION:INHALATION AEROSOL, STRENGTH: 1 TUBE; DAILY DOSE: 4 TUBES
     Route: 055
  13. FISH OIL [Concomitant]
     Indication: BLOOD TRIGLYCERIDES INCREASED
     Dosage: 2400 MG
     Route: 048
  14. NIACIN [Concomitant]
     Indication: BLOOD TRIGLYCERIDES INCREASED
     Dosage: 250 MG
     Route: 048
  15. HYDROCODONE/TYLENOL [Concomitant]
     Indication: SCIATICA
     Dosage: DOSE PER APPLICATION: 100/325 MG
     Route: 048
  16. FLONASE [Concomitant]
     Indication: NASAL DECONGESTION THERAPY
     Dosage: FORMULATION: NASAL SPRAY, STRENGTH: 2 SPRAYS; DAILY DOSE: 4 SPRAYS
     Route: 048
  17. LINZESS [Concomitant]
     Indication: IRRITABLE BOWEL SYNDROME
     Dosage: 145 MCG
     Route: 048
  18. LEVOTHYROXINE [Concomitant]
     Indication: BASEDOW^S DISEASE
     Dosage: 150 MCG
     Route: 048
  19. HYDROTHYROXIDE/CLIDMINIUM [Concomitant]
     Indication: IRRITABLE BOWEL SYNDROME
     Dosage: DOSE PER APPLICATION: 5 MG/2.5 MG; DAILY DOSE: 15 MG/7.5 MG
     Route: 048
  20. MELOXICAM [Concomitant]
     Indication: ARTHRITIS
     Dosage: 15 MG
     Route: 048
  21. MELOXICAM [Concomitant]
     Dosage: 7.5 MG
     Route: 048
  22. MONTELUKAST SODIUM [Concomitant]
     Indication: HYPERSENSITIVITY
     Dosage: 10 MG
     Route: 048
  23. PANTOPRAZOLE [Concomitant]
     Indication: GASTROOESOPHAGEAL REFLUX DISEASE
     Dosage: 40 MG
     Route: 048
  24. POLYETHYLENE GLYCOL [Concomitant]
     Indication: IRRITABLE BOWEL SYNDROME
     Dosage: DOSE PER APPLICATION: 2 CAP FULL^S; DAILY DOSE: 4 CAP FULL^S
     Route: 048
  25. MULTIVITAMINS [Concomitant]
     Dosage: 1 ANZ
     Route: 048
  26. PERFOROMIST [Concomitant]
     Indication: DYSPNOEA
     Dosage: FORMULATION: INHALATION AEROSOL, STRENGTH: 1 TUBE; DAILY DOSE: 2 TUBES
     Route: 055
  27. RANITIDINE [Concomitant]
     Indication: GASTROOESOPHAGEAL REFLUX DISEASE
     Dosage: 150 MG
     Route: 048

REACTIONS (6)
  - Joint dislocation [Not Recovered/Not Resolved]
  - Arthritis [Not Recovered/Not Resolved]
  - Joint dislocation [Not Recovered/Not Resolved]
  - Chondropathy [Not Recovered/Not Resolved]
  - Chondropathy [Not Recovered/Not Resolved]
  - Joint dislocation [Not Recovered/Not Resolved]
